FAERS Safety Report 13027780 (Version 1)
Quarter: 2016Q4

REPORT INFORMATION
  Report Type: Spontaneous
  Country: GB (occurrence: GB)
  Receive Date: 20161214
  Receipt Date: 20161214
  Transmission Date: 20170207
  Serious: Yes (Other)
  Sender: FDA-Public Use
  Company Number: GB-TEVA-717913ACC

PATIENT
  Age: 34 Year
  Sex: Female
  Weight: 90 kg

DRUGS (4)
  1. BUCCASTEM [Concomitant]
  2. METOCLOPRAMIDE HYDROCHLORIDE. [Suspect]
     Active Substance: METOCLOPRAMIDE HYDROCHLORIDE
     Indication: VOMITING
     Dosage: 30 MILLIGRAM DAILY;
     Route: 048
     Dates: start: 20160901, end: 20161014
  3. CYCLIZINE [Concomitant]
     Active Substance: CYCLIZINE
  4. THIAMINE. [Concomitant]
     Active Substance: THIAMINE

REACTIONS (3)
  - Cognitive disorder [Recovered/Resolved]
  - Fatigue [Recovered/Resolved]
  - Memory impairment [Recovered/Resolved]

NARRATIVE: CASE EVENT DATE: 20160901
